FAERS Safety Report 15476192 (Version 3)
Quarter: 2019Q3

REPORT INFORMATION
  Report Type: Report from Study
  Country: AR (occurrence: AR)
  Receive Date: 20181009
  Receipt Date: 20190719
  Transmission Date: 20191004
  Serious: Yes (Death, Hospitalization)
  Sender: FDA-Public Use
  Company Number: PHHY2018AR116372

PATIENT
  Age: 55 Year
  Sex: Female
  Weight: 87 kg

DRUGS (1)
  1. GILENYA [Suspect]
     Active Substance: FINGOLIMOD HYDROCHLORIDE
     Indication: MULTIPLE SCLEROSIS
     Dosage: 0.5 MG, QD
     Route: 048
     Dates: start: 20171002, end: 20180911

REACTIONS (3)
  - Pyrexia [Unknown]
  - HIV test positive [Fatal]
  - Confusional state [Unknown]

NARRATIVE: CASE EVENT DATE: 20180907
